FAERS Safety Report 4594800-5 (Version None)
Quarter: 2005Q1

REPORT INFORMATION
  Report Type: 
  Country: None (occurrence: None)
  Receive Date: 20050223
  Receipt Date: 20050208
  Transmission Date: 20050727
  Serious: Yes (Hospitalization)
  Sender: FDA-Public Use
  Company Number: 2005GB00280

PATIENT
  Age: 77 Year
  Sex: Female

DRUGS (5)
  1. SEROQUEL [Suspect]
     Indication: AFFECTIVE DISORDER
     Dosage: 25 MG PO
     Route: 048
     Dates: start: 20050117, end: 20050117
  2. TEMAZEPAM [Concomitant]
  3. VENLAFAXINE HCL [Concomitant]
  4. DONEPEZIL HCL [Concomitant]
  5. TRAZODONE HCL [Concomitant]

REACTIONS (2)
  - DEPRESSED LEVEL OF CONSCIOUSNESS [None]
  - ELECTROCARDIOGRAM QT PROLONGED [None]
